FAERS Safety Report 4910302-8 (Version None)
Quarter: 2006Q1

REPORT INFORMATION
  Report Type: 
  Country: None (occurrence: None)
  Receive Date: 20060209
  Receipt Date: 20060127
  Transmission Date: 20060701
  Serious: Yes (Hospitalization)
  Sender: FDA-Public Use
  Company Number: 06-0013PO

PATIENT
  Age: 44 Year
  Sex: Female

DRUGS (1)
  1. MEFENAMIC ACID [Suspect]
     Indication: MENSTRUAL DISORDER
     Dosage: 500 MG, ORAL
     Route: 048
     Dates: start: 20051223, end: 20051228

REACTIONS (3)
  - DEEP VEIN THROMBOSIS [None]
  - INTENTIONAL DRUG MISUSE [None]
  - UTERINE HAEMORRHAGE [None]
